FAERS Safety Report 19173807 (Version 2)
Quarter: 2021Q2

REPORT INFORMATION
  Report Type: Report from Study
  Country: CO (occurrence: CO)
  Receive Date: 20210423
  Receipt Date: 20210630
  Transmission Date: 20210717
  Serious: Yes (Hospitalization, Other)
  Sender: FDA-Public Use
  Company Number: CO-BAYER-2021-015787

PATIENT
  Age: 61 Year
  Sex: Male

DRUGS (9)
  1. XOFIGO [Suspect]
     Active Substance: RADIUM RA-223 DICHLORIDE
     Indication: HORMONE-REFRACTORY PROSTATE CANCER
     Dosage: 55 KBQ/KG BODY WEIGHT, 1 MONTHLY ADMINISTRATION FOR 6 MONTHS
     Route: 042
     Dates: start: 20201127, end: 20201127
  2. XOFIGO [Suspect]
     Active Substance: RADIUM RA-223 DICHLORIDE
     Indication: HORMONE-REFRACTORY PROSTATE CANCER
     Dosage: 55 KBQ/KG BODY WEIGHT, 1 MONTHLY ADMINISTRATION FOR 6 MONTHS
     Route: 042
     Dates: start: 20201223, end: 20201223
  3. ABIRATERONE. [Concomitant]
     Active Substance: ABIRATERONE ACETATE
     Indication: PROSTATE CANCER
     Dosage: UNK
  4. XOFIGO [Suspect]
     Active Substance: RADIUM RA-223 DICHLORIDE
     Indication: HORMONE-REFRACTORY PROSTATE CANCER
     Dosage: 55 KBQ/KG BODY WEIGHT, 1 MONTHLY ADMINISTRATION FOR 6 MONTHS
     Route: 042
     Dates: start: 20210303, end: 20210303
  5. XOFIGO [Suspect]
     Active Substance: RADIUM RA-223 DICHLORIDE
     Indication: HORMONE-REFRACTORY PROSTATE CANCER
     Dosage: 55 KBQ/KG BODY WEIGHT, 1 MONTHLY ADMINISTRATION FOR 6 MONTHS
     Route: 042
     Dates: start: 20210128, end: 20210128
  6. ESOMEPRAZOLE. [Concomitant]
     Active Substance: ESOMEPRAZOLE MAGNESIUM
     Dosage: UNK
  7. XOFIGO [Suspect]
     Active Substance: RADIUM RA-223 DICHLORIDE
     Indication: HORMONE-REFRACTORY PROSTATE CANCER
     Dosage: 55 KBQ/KG BODY WEIGHT, 1 MONTHLY ADMINISTRATION FOR 6 MONTHS
     Route: 042
     Dates: start: 20210408, end: 20210408
  8. XOFIGO [Suspect]
     Active Substance: RADIUM RA-223 DICHLORIDE
     Indication: HORMONE-REFRACTORY PROSTATE CANCER
     Dosage: 50 KBQ X KG OF BODY WEIGH
  9. ZOLEDRONIC ACID [Concomitant]
     Active Substance: ZOLEDRONIC ACID
     Indication: METASTASES TO BONE
     Dosage: UNK

REACTIONS (14)
  - Platelet count decreased [Not Recovered/Not Resolved]
  - Quality of life decreased [Recovering/Resolving]
  - Pain [Not Recovered/Not Resolved]
  - Musculoskeletal chest pain [Recovering/Resolving]
  - Haemoglobin decreased [Not Recovered/Not Resolved]
  - Haemoglobin decreased [Recovered/Resolved]
  - Drug intolerance [None]
  - Decreased activity [None]
  - Eating disorder [None]
  - Back pain [Recovering/Resolving]
  - Vertebral column mass [Unknown]
  - Haemoglobin decreased [Not Recovered/Not Resolved]
  - Drug ineffective [None]
  - Pain [Not Recovered/Not Resolved]

NARRATIVE: CASE EVENT DATE: 20201127
